FAERS Safety Report 15318219 (Version 3)
Quarter: 2020Q4

REPORT INFORMATION
  Report Type: Spontaneous
  Country: US (occurrence: US)
  Receive Date: 20180825
  Receipt Date: 20201127
  Transmission Date: 20210113
  Serious: Yes (Hospitalization)
  Sender: FDA-Public Use
  Company Number: US-JNJFOC-20180814686

PATIENT
  Age: 41 Year
  Sex: Female
  Weight: 117.59 kg

DRUGS (2)
  1. XARELTO [Suspect]
     Active Substance: RIVAROXABAN
     Indication: DEEP VEIN THROMBOSIS
     Dosage: VARYING DOSES OF 15 MG-20 MG
     Route: 048
     Dates: start: 20170426, end: 20170510
  2. XARELTO [Suspect]
     Active Substance: RIVAROXABAN
     Indication: PULMONARY EMBOLISM

REACTIONS (3)
  - Inappropriate schedule of product administration [Unknown]
  - Off label use [Unknown]
  - Mouth haemorrhage [Recovered/Resolved]

NARRATIVE: CASE EVENT DATE: 20170426
